FAERS Safety Report 6755921-1 (Version None)
Quarter: 2010Q2

REPORT INFORMATION
  Report Type: 
  Country: None (occurrence: None)
  Receive Date: 20100604
  Receipt Date: 20100525
  Transmission Date: 20101027
  Serious: Yes (Death, Hospitalization)
  Sender: FDA-Public Use
  Company Number: HU-AMGEN-QUU414052

PATIENT
  Age: 54 Year
  Sex: Female

DRUGS (4)
  1. ENBREL [Suspect]
     Indication: DRUG USE FOR UNKNOWN INDICATION
     Route: 058
     Dates: start: 20080331
  2. FOLIC ACID [Concomitant]
  3. MELOXICAM [Concomitant]
     Dosage: 15 MG, FREQUENCY UNKNOWN
  4. METHOTREXATE [Concomitant]

REACTIONS (1)
  - CEREBRAL HAEMORRHAGE [None]
